FAERS Safety Report 6280761-X (Version None)
Quarter: 2009Q3

REPORT INFORMATION
  Report Type: 
  Country: None (occurrence: None)
  Receive Date: 20090724
  Receipt Date: 20090116
  Transmission Date: 20100115
  Serious: Yes (Hospitalization)
  Sender: FDA-Public Use
  Company Number: A0764569A

PATIENT
  Age: 62 Year
  Sex: Male
  Weight: 79.5 kg

DRUGS (8)
  1. AVANDIA [Suspect]
     Dosage: 4MG TWICE PER DAY
     Route: 048
     Dates: start: 20051216
  2. AVANDAMET [Suspect]
     Route: 048
     Dates: start: 20040601, end: 20060101
  3. GLUCOPHAGE [Concomitant]
  4. METFORMIN HCL [Concomitant]
  5. GLUCOTROL [Concomitant]
  6. RAMIPRIL [Concomitant]
  7. PREDNISONE TAB [Concomitant]
  8. MEDROL [Concomitant]

REACTIONS (2)
  - CARDIAC FAILURE CONGESTIVE [None]
  - OEDEMA [None]
